FAERS Safety Report 20219914 (Version 3)
Quarter: 2022Q3

REPORT INFORMATION
  Report Type: Spontaneous
  Country: US (occurrence: None)
  Receive Date: 20211222
  Receipt Date: 20220713
  Transmission Date: 20221027
  Serious: Yes (Hospitalization)
  Sender: FDA-Public Use
  Company Number: US-MDD US Operations-MDD202112-002574

PATIENT
  Age: 76 Year
  Sex: Male

DRUGS (14)
  1. APOKYN [Suspect]
     Active Substance: APOMORPHINE HYDROCHLORIDE
     Indication: Parkinson^s disease
     Dosage: UPTO 0.5 ML
     Route: 058
  2. APOKYN [Suspect]
     Active Substance: APOMORPHINE HYDROCHLORIDE
     Route: 058
  3. APOKYN [Suspect]
     Active Substance: APOMORPHINE HYDROCHLORIDE
     Route: 058
  4. MIRAPEX [Concomitant]
     Active Substance: PRAMIPEXOLE DIHYDROCHLORIDE
     Dosage: NOT PROVIDED
  5. NAMENDA [Concomitant]
     Active Substance: MEMANTINE HYDROCHLORIDE
     Dosage: NOT PROVIDED
  6. SYNTHROID [Concomitant]
     Active Substance: LEVOTHYROXINE SODIUM
     Dosage: NOT PROVIDED
  7. PREDNISONE [Concomitant]
     Active Substance: PREDNISONE
     Dosage: NOT PROVIDED
  8. METHOTREXATE [Concomitant]
     Active Substance: METHOTREXATE
     Dosage: NOT PROVIDED
  9. SINEMET [Concomitant]
     Active Substance: CARBIDOPA\LEVODOPA
     Dosage: EACH DF OF 25-100 MG
  10. NITROGLYCERIN [Concomitant]
     Active Substance: NITROGLYCERIN
     Dosage: 0.4 MG
     Route: 060
  11. ASPIRIN [Concomitant]
     Active Substance: ASPIRIN
     Dosage: NOT PROVIDED
  12. ZOLOFT [Concomitant]
     Active Substance: SERTRALINE HYDROCHLORIDE
     Dosage: NOT PROVIDED
  13. RITALIN [Concomitant]
     Active Substance: METHYLPHENIDATE HYDROCHLORIDE
     Dosage: NOT PROVIDED
  14. DITROPAN XL [Concomitant]
     Active Substance: OXYBUTYNIN CHLORIDE
     Dosage: NOT PROVIDED

REACTIONS (5)
  - Arthropod sting [Unknown]
  - Skin infection [Unknown]
  - Fall [Unknown]
  - Gait disturbance [Unknown]
  - Influenza [Unknown]
